FAERS Safety Report 10027856 (Version 1)
Quarter: 2014Q1

REPORT INFORMATION
  Report Type: Spontaneous
  Country: US (occurrence: US)
  Receive Date: 20140321
  Receipt Date: 20140321
  Transmission Date: 20141002
  Serious: Yes (Other)
  Sender: FDA-Public Use
  Company Number: US-MYLANLABS-2014S1005775

PATIENT
  Age: 41 Year
  Sex: Female

DRUGS (5)
  1. TOPIRAMATE TABLETS [Suspect]
     Indication: MIGRAINE PROPHYLAXIS
     Route: 048
     Dates: start: 20131224, end: 20140203
  2. TOPIRAMATE TABLETS [Suspect]
     Indication: OFF LABEL USE
     Route: 048
     Dates: start: 20131224, end: 20140203
  3. FLUTICASONE [Suspect]
     Route: 045
     Dates: end: 20140129
  4. SPIRONOLACTONE [Suspect]
     Dates: end: 20140129
  5. METRONIDAZOLE [Concomitant]
     Dates: start: 20131224, end: 20131228

REACTIONS (7)
  - Anaphylactic reaction [Recovered/Resolved]
  - Migraine [Recovered/Resolved]
  - Confusional state [Recovered/Resolved]
  - Tremor [Recovered/Resolved]
  - Pain [Recovered/Resolved]
  - Rash [Recovered/Resolved]
  - Reaction to drug excipients [Recovered/Resolved]
